FAERS Safety Report 21746261 (Version 5)
Quarter: 2023Q2

REPORT INFORMATION
  Report Type: Spontaneous
  Country: US (occurrence: US)
  Receive Date: 20221219
  Receipt Date: 20230413
  Transmission Date: 20230721
  Serious: Yes (Hospitalization, Other)
  Sender: FDA-Public Use
  Company Number: US-BRISTOL-MYERS SQUIBB COMPANY-2022-153028

PATIENT
  Age: 77 Year
  Sex: Female
  Weight: 66.22 kg

DRUGS (3)
  1. POMALYST [Suspect]
     Active Substance: POMALIDOMIDE
     Indication: Plasma cell myeloma
     Dosage: DAILY FOR 21DAYS?3W, 1W OFF
     Route: 048
     Dates: start: 20211201
  2. POMALYST [Suspect]
     Active Substance: POMALIDOMIDE
     Dosage: DAILY FOR 21 DAYS
     Route: 048
     Dates: start: 20211001
  3. POMALYST [Suspect]
     Active Substance: POMALIDOMIDE
     Dosage: 4 MG, 3 WEEKS, 1 WEEK OFF
     Route: 048
     Dates: start: 20221001

REACTIONS (11)
  - Cardiac disorder [Unknown]
  - Constipation [Unknown]
  - Diarrhoea [Unknown]
  - Blood glucose increased [Unknown]
  - Glycosylated haemoglobin increased [Unknown]
  - Post procedural haemorrhage [Unknown]
  - Haemoglobin decreased [Unknown]
  - Neutrophil count decreased [Unknown]
  - Hyperglycaemia [Unknown]
  - White blood cell count decreased [Unknown]
  - Eating disorder [Unknown]
